FAERS Safety Report 7575974-0 (Version None)
Quarter: 2011Q2

REPORT INFORMATION
  Report Type: 
  Country: None (occurrence: None)
  Receive Date: 20110628
  Receipt Date: 20110610
  Transmission Date: 20111010
  Serious: Yes (Hospitalization, Other)
  Sender: FDA-Public Use
  Company Number: US-BAYER-2010-001604

PATIENT
  Age: 20 Year
  Sex: Female
  Weight: 50.794 kg

DRUGS (6)
  1. DROSPIRENONE AND ETHINYL ESTRADIOL [Suspect]
     Indication: CONTRACEPTION
     Dosage: UNK
     Dates: start: 20100201, end: 20100401
  2. CIPROFLOXACIN [Concomitant]
     Dosage: 250 MG
     Route: 048
  3. IBUPROFEN [Concomitant]
     Dosage: 800 MG
     Route: 048
     Dates: start: 20100406
  4. TYLENOL W/ CODEINE NO. 3 [Concomitant]
     Indication: HEADACHE
     Dosage: 1000 MG AS NEEDED
     Route: 048
  5. AMOXICILLIN [Concomitant]
     Dosage: 875 MG
     Route: 048
  6. FLUCONAZOLE [Concomitant]
     Dosage: 150 MG
     Route: 048

REACTIONS (3)
  - PULMONARY EMBOLISM [None]
  - DYSPNOEA [None]
  - CHEST PAIN [None]
